FAERS Safety Report 12490910 (Version 1)
Quarter: 2016Q2

REPORT INFORMATION
  Report Type: Spontaneous
  Country: US (occurrence: US)
  Receive Date: 20160623
  Receipt Date: 20160623
  Transmission Date: 20160815
  Serious: No
  Sender: FDA-Public Use
  Company Number: US-BIOGEN-2016BI00250849

PATIENT
  Sex: Female

DRUGS (1)
  1. TYSABRI [Suspect]
     Active Substance: NATALIZUMAB
     Indication: MULTIPLE SCLEROSIS
     Route: 065
     Dates: start: 20090109, end: 20090109

REACTIONS (5)
  - Flushing [Unknown]
  - Chest pain [Unknown]
  - Dysgeusia [Unknown]
  - Hypoaesthesia [Unknown]
  - Erythema [Unknown]
